FAERS Safety Report 21668454 (Version 1)
Quarter: 2022Q4

REPORT INFORMATION
  Report Type: Spontaneous
  Country: CN (occurrence: CN)
  Receive Date: 20221201
  Receipt Date: 20221201
  Transmission Date: 20230113
  Serious: Yes (Life-Threatening, Hospitalization)
  Sender: FDA-Public Use
  Company Number: CN-009507513-2211CHN009608

PATIENT
  Age: 69 Year
  Sex: Male
  Weight: 61 kg

DRUGS (2)
  1. CILASTATIN SODIUM\IMIPENEM [Suspect]
     Active Substance: CILASTATIN SODIUM\IMIPENEM
     Indication: Anti-infective therapy
     Dosage: 1 G, Q8H
     Route: 041
     Dates: start: 20221114, end: 20221114
  2. SODIUM CHLORIDE [Concomitant]
     Active Substance: SODIUM CHLORIDE
     Indication: Medication dilution
     Dosage: 100 ML, Q8H
     Route: 041
     Dates: start: 20221114, end: 20221114

REACTIONS (17)
  - Heart rate increased [Recovering/Resolving]
  - Blood pressure decreased [Recovering/Resolving]
  - Rash erythematous [Recovering/Resolving]
  - Rash pruritic [Recovering/Resolving]
  - Dyspnoea [Unknown]
  - Abdominal pain lower [Unknown]
  - Pain in extremity [Unknown]
  - Muscle twitching [Unknown]
  - Oxygen saturation abnormal [Unknown]
  - Body temperature abnormal [Unknown]
  - Muscle spasms [Unknown]
  - Asthma [Unknown]
  - Tic [Recovered/Resolved]
  - Musculoskeletal stiffness [Unknown]
  - Speech disorder [Unknown]
  - Sedative therapy [Unknown]
  - Cyanosis [Unknown]

NARRATIVE: CASE EVENT DATE: 20221101
